FAERS Safety Report 9317574 (Version 3)
Quarter: 2013Q4

REPORT INFORMATION
  Report Type: Spontaneous
  Country: GB (occurrence: GB)
  Receive Date: 20130530
  Receipt Date: 20131022
  Transmission Date: 20140711
  Serious: Yes (Hospitalization, Other)
  Sender: FDA-Public Use
  Company Number: GB-PFIZER INC-2013161905

PATIENT
  Age: 68 Year
  Sex: Male
  Weight: 73 kg

DRUGS (7)
  1. IBUPROFEN [Suspect]
     Indication: SCIATICA
     Dosage: 200 MG, 3X/DAY, DOSAGE FORM: UNSPECIFIED, AS NECESSARY
     Route: 048
     Dates: start: 20130404, end: 20130423
  2. IBUPROFEN [Suspect]
     Dosage: 400 MG, 3X/DAY, DOSAGE FORM: UNSPECIFIED, AS NECESSARY
     Route: 048
     Dates: start: 20130424, end: 20130425
  3. AMLODIPINE [Concomitant]
     Indication: HYPERTENSION
     Dosage: ONGOING; DOSAGE FORM: UNSPECIFIED
     Route: 048
  4. BENDROFLUMETHIAZIDE [Concomitant]
     Indication: HYPERTENSION
     Dosage: ONGOING; DOSAGE FORM: UNSPECIFIED
     Route: 048
  5. CO-DYDRAMOL [Concomitant]
     Indication: ANALGESIC THERAPY
     Dosage: 10/500MG. ONE TO TWO FOUR TIMES A DAY, AS REQUIRED; DOSAGE FORM: UNSPECIFIED
     Route: 048
  6. MESALAZINE [Concomitant]
     Indication: COLITIS ULCERATIVE
     Dosage: ONGOING; DOSAGE FORM: UNSPECIFIED
     Route: 048
  7. PARAMOL [Concomitant]
     Indication: ANALGESIC THERAPY

REACTIONS (6)
  - Diarrhoea [Recovering/Resolving]
  - Vomiting [Recovering/Resolving]
  - Gastrointestinal haemorrhage [Recovering/Resolving]
  - Melaena [Recovering/Resolving]
  - Nausea [Recovering/Resolving]
  - Haematemesis [Recovering/Resolving]
